FAERS Safety Report 4386921-7 (Version None)
Quarter: 2004Q2

REPORT INFORMATION
  Report Type: 
  Country: None (occurrence: None)
  Receive Date: 20040629
  Receipt Date: 20040629
  Transmission Date: 20050107
  Serious: Yes (Hospitalization)
  Sender: FDA-Public Use
  Company Number: None

PATIENT
  Age: 65 Year
  Sex: Female
  Weight: 111.7 kg

DRUGS (12)
  1. INTEGRILIN [Suspect]
     Indication: ANTIPLATELET THERAPY
     Dosage: 2 (10.27 ML BOLUSES) 18 ML/HR IV
     Route: 042
     Dates: start: 20040623, end: 20040624
  2. HEPARIN [Suspect]
     Indication: THROMBOSIS PROPHYLAXIS
     Dosage: 5,590 UNITS IV
     Route: 042
     Dates: start: 20040623
  3. FUROSEMIDE [Concomitant]
  4. MIDAZOLAM HCL [Concomitant]
  5. FENTANYL [Concomitant]
  6. LIDOCAINE [Concomitant]
  7. MORPHINE [Concomitant]
  8. CEFAZIDINE [Concomitant]
  9. ASPIRIN [Concomitant]
  10. PEPCID [Concomitant]
  11. CLOPIDOGREL [Concomitant]
  12. POTASSIUM [Concomitant]

REACTIONS (2)
  - BLOOD CREATINE PHOSPHOKINASE MB INCREASED [None]
  - DRUG INEFFECTIVE [None]
